FAERS Safety Report 16342088 (Version 2)
Quarter: 2019Q2

REPORT INFORMATION
  Report Type: Spontaneous
  Country: CL (occurrence: CL)
  Receive Date: 20190522
  Receipt Date: 20190611
  Transmission Date: 20190711
  Serious: Yes (Other)
  Sender: FDA-Public Use
  Company Number: CL-PROVELL PHARMACEUTICALS-2067289

PATIENT
  Sex: Female

DRUGS (2)
  1. ESOMEPRAZOLE. [Concomitant]
     Active Substance: ESOMEPRAZOLE MAGNESIUM
  2. EUTHYROX [Suspect]
     Active Substance: LEVOTHYROXINE SODIUM
     Indication: AUTOIMMUNE THYROIDITIS

REACTIONS (8)
  - Migraine [None]
  - Hypertension [None]
  - Pain [Not Recovered/Not Resolved]
  - Weight loss poor [None]
  - Bone pain [Not Recovered/Not Resolved]
  - Helicobacter infection [None]
  - Type 1 diabetes mellitus [None]
  - Osteoarthritis [None]
